FAERS Safety Report 18152370 (Version 1)
Quarter: 2020Q3

REPORT INFORMATION
  Report Type: Spontaneous
  Country: US (occurrence: US)
  Receive Date: 20200814
  Receipt Date: 20200814
  Transmission Date: 20201103
  Serious: Yes (Other)
  Sender: FDA-Public Use
  Company Number: US-MYLANLABS-2020M1070749

PATIENT
  Age: 71 Year
  Sex: Female
  Weight: 43 kg

DRUGS (2)
  1. CIMETIDINE TABLETS, USP [Suspect]
     Active Substance: CIMETIDINE
     Indication: DUODENAL ULCER
     Dosage: 800 MILLIGRAM, QD
     Route: 048
     Dates: start: 20200806, end: 20200807
  2. CIMETIDINE TABLETS, USP [Suspect]
     Active Substance: CIMETIDINE
     Indication: GASTROOESOPHAGEAL REFLUX DISEASE

REACTIONS (12)
  - Pruritus [Not Recovered/Not Resolved]
  - Deafness [Not Recovered/Not Resolved]
  - Pyrexia [Not Recovered/Not Resolved]
  - Confusional state [Not Recovered/Not Resolved]
  - Adverse event [Unknown]
  - Incorrect dose administered [Unknown]
  - Groin pain [Not Recovered/Not Resolved]
  - Diarrhoea [Not Recovered/Not Resolved]
  - Chest pain [Not Recovered/Not Resolved]
  - Oropharyngeal pain [Not Recovered/Not Resolved]
  - Dizziness [Not Recovered/Not Resolved]
  - Hypersensitivity [Not Recovered/Not Resolved]

NARRATIVE: CASE EVENT DATE: 20200806
